FAERS Safety Report 7370845-7 (Version None)
Quarter: 2011Q1

REPORT INFORMATION
  Report Type: 
  Country: None (occurrence: None)
  Receive Date: 20110324
  Receipt Date: 20110314
  Transmission Date: 20110831
  Serious: No
  Sender: FDA-Public Use
  Company Number: US-BIOGENIDEC-2011BI004304

PATIENT
  Sex: Female

DRUGS (2)
  1. TYSABRI [Suspect]
     Indication: MULTIPLE SCLEROSIS
     Route: 042
     Dates: start: 20070307
  2. TYSABRI [Suspect]
     Route: 042
     Dates: start: 20050221, end: 20050228

REACTIONS (8)
  - MOBILITY DECREASED [None]
  - FAECALOMA [None]
  - GASTROINTESTINAL DISORDER [None]
  - BLADDER DISORDER [None]
  - MENTAL IMPAIRMENT [None]
  - BLINDNESS [None]
  - COORDINATION ABNORMAL [None]
  - ASTHENIA [None]
